FAERS Safety Report 6493453-9 (Version None)
Quarter: 2009Q4

REPORT INFORMATION
  Report Type: 
  Country: None (occurrence: None)
  Receive Date: 20091211
  Receipt Date: 20091211
  Transmission Date: 20100525
  Serious: No
  Sender: FDA-Public Use
  Company Number: None

PATIENT
  Age: 68 Year
  Sex: Male
  Weight: 61.1 kg

DRUGS (2)
  1. FENTANYL [Suspect]
     Indication: PAIN
     Dosage: 12 MCG OTHER TOP
     Route: 061
     Dates: start: 20090807, end: 20090808
  2. OXYCODONE [Suspect]
     Dosage: 15 MG PRN PO
     Route: 048
     Dates: start: 20090804, end: 20090807

REACTIONS (1)
  - RESPIRATORY DISTRESS [None]
